FAERS Safety Report 6876695-X (Version None)
Quarter: 2010Q3

REPORT INFORMATION
  Report Type: 
  Country: None (occurrence: None)
  Receive Date: 20100727
  Receipt Date: 20100713
  Transmission Date: 20110219
  Serious: Yes (Hospitalization)
  Sender: FDA-Public Use
  Company Number: US-MYLANLABS-2010S1012423

PATIENT
  Age: 46 Year
  Sex: Female

DRUGS (6)
  1. FENTANYL [Interacting]
     Indication: GENERAL ANAESTHESIA
     Route: 042
  2. SERTRALINE HYDROCHLORIDE [Suspect]
     Indication: DEPRESSION
     Route: 065
  3. CETIRIZINE HCL [Concomitant]
     Indication: SEASONAL ALLERGY
     Route: 065
  4. MIDAZOLAM HCL [Concomitant]
     Route: 065
  5. PROPOFOL [Concomitant]
     Route: 065
  6. PROPOFOL [Concomitant]
     Route: 065

REACTIONS (4)
  - ALANINE AMINOTRANSFERASE INCREASED [None]
  - ASPARTATE AMINOTRANSFERASE INCREASED [None]
  - DRUG INTERACTION [None]
  - SEROTONIN SYNDROME [None]
